FAERS Safety Report 5449774-1 (Version None)
Quarter: 2007Q3

REPORT INFORMATION
  Report Type: 
  Country: None (occurrence: None)
  Receive Date: 20070910
  Receipt Date: 20070824
  Transmission Date: 20080115
  Serious: Yes (Life-Threatening, Hospitalization)
  Sender: FDA-Public Use
  Company Number: DSA_30302_2007

PATIENT
  Sex: Female

DRUGS (6)
  1. LORAZEPAM [Suspect]
     Dosage: 2 MG 1X ORAL
     Route: 048
     Dates: start: 20070721, end: 20070721
  2. BENPERIDOL (BENPERIDOL) [Suspect]
     Dosage: 3 MG 1X ORAL
     Route: 048
     Dates: start: 20070721, end: 20070721
  3. FENTANYL [Suspect]
     Dosage: DF 1X TRANSDERMAL
     Route: 062
  4. FUROSEMIDE [Suspect]
     Dosage: DF 1X ORAL
     Route: 048
     Dates: start: 20070721, end: 20070721
  5. HALDOL [Suspect]
     Dosage: 15 MG 1X ORAL
     Route: 048
     Dates: start: 20070721, end: 20070721
  6. NEUROCIL /00038602/ ( NEUROCIL-LEVOMEPROMAZINE MALEATE) [Suspect]
     Dosage: 25 MG 1X ORAL
     Route: 048
     Dates: start: 20070721

REACTIONS (9)
  - APNOEA [None]
  - BLOOD PRESSURE SYSTOLIC DECREASED [None]
  - COMA [None]
  - HYPERVIGILANCE [None]
  - MEDICATION ERROR [None]
  - MULTIPLE DRUG OVERDOSE ACCIDENTAL [None]
  - NEUROLOGICAL SYMPTOM [None]
  - SOPOR [None]
  - STARING [None]
